FAERS Safety Report 8456891-0 (Version None)
Quarter: 2012Q2

REPORT INFORMATION
  Report Type: 
  Country: None (occurrence: None)
  Receive Date: 20120323
  Receipt Date: 20110914
  Transmission Date: 20120825
  Serious: Yes (Other)
  Sender: FDA-Public Use
  Company Number: 163-21880-11092061

PATIENT
  Age: 63 Year
  Sex: Male

DRUGS (3)
  1. REVLIMID [Suspect]
     Indication: MULTIPLE MYELOMA
     Dosage: 25 MG, 1 IN 1 D, PO ; 10 MG, DAILY ON DAYS 1 THRU 21 OF 28 DAY CYCLE, PO ; 10 MG, QD X 21 DAYS, PO
     Route: 048
     Dates: start: 20101215
  2. REVLIMID [Suspect]
     Indication: MULTIPLE MYELOMA
     Dosage: 25 MG, 1 IN 1 D, PO ; 10 MG, DAILY ON DAYS 1 THRU 21 OF 28 DAY CYCLE, PO ; 10 MG, QD X 21 DAYS, PO
     Route: 048
     Dates: start: 20110816
  3. REVLIMID [Suspect]
     Indication: MULTIPLE MYELOMA
     Dosage: 25 MG, 1 IN 1 D, PO ; 10 MG, DAILY ON DAYS 1 THRU 21 OF 28 DAY CYCLE, PO ; 10 MG, QD X 21 DAYS, PO
     Route: 048
     Dates: start: 20110901

REACTIONS (1)
  - PANCYTOPENIA [None]
